FAERS Safety Report 9563251 (Version 1)
Quarter: 2013Q3

REPORT INFORMATION
  Report Type: Spontaneous
  Country: US (occurrence: US)
  Receive Date: 20130927
  Receipt Date: 20130927
  Transmission Date: 20140515
  Serious: Yes (Death, Hospitalization)
  Sender: FDA-Public Use
  Company Number: US-CUBIST PHARMACEUTICALS, INC.-2013CBST000873

PATIENT
  Sex: 0

DRUGS (4)
  1. CUBICIN [Suspect]
     Indication: STAPHYLOCOCCAL BACTERAEMIA
     Dosage: 8 MG/KG, UNK
     Route: 051
  2. CUBICIN [Suspect]
     Dosage: 8 MG/KG, UNK
     Route: 051
  3. CEFTAROLINE FOSAMIL [Suspect]
     Indication: STAPHYLOCOCCAL BACTERAEMIA
     Dosage: 600 UNK, Q12H
     Route: 065
  4. AMPICILLIN SULBACTUM [Suspect]
     Indication: STAPHYLOCOCCAL BACTERAEMIA
     Dosage: UNK, UNK, UNK
     Route: 065

REACTIONS (4)
  - Death [Fatal]
  - Escherichia bacteraemia [Unknown]
  - Device related infection [Unknown]
  - Treatment failure [Unknown]
